FAERS Safety Report 5053994-8 (Version None)
Quarter: 2006Q3

REPORT INFORMATION
  Report Type: 
  Country: None (occurrence: None)
  Receive Date: 20060713
  Receipt Date: 20060704
  Transmission Date: 20061208
  Serious: Yes (Hospitalization, Other)
  Sender: FDA-Public Use
  Company Number: 2006-07-0073

PATIENT
  Age: 30 Year
  Sex: Female
  Weight: 49 kg

DRUGS (3)
  1. PEG-INTERFERON ALFA-2B REDIPEN [Suspect]
     Indication: HEPATITIS C
     Dosage: 80 MCG QWK SUBCUTANEOUS
     Route: 058
     Dates: start: 20060518
  2. RIBAVIRIN [Suspect]
     Indication: HEPATITIS C
     Dosage: 400 MG BID ORAL
     Route: 048
     Dates: start: 20060518
  3. HYDROMORPHONE HCL [Concomitant]

REACTIONS (2)
  - PROCTALGIA [None]
  - SICKLE CELL ANAEMIA WITH CRISIS [None]
